FAERS Safety Report 7954004-2 (Version None)
Quarter: 2011Q4

REPORT INFORMATION
  Report Type: 
  Country: None (occurrence: None)
  Receive Date: 20111202
  Receipt Date: 20111202
  Transmission Date: 20120403
  Serious: Yes (Death)
  Sender: FDA-Public Use
  Company Number: None

PATIENT
  Age: 5 Day
  Sex: Female

DRUGS (1)
  1. MISOPROSTOL [Suspect]
     Indication: PROLONGED PREGNANCY
     Dosage: 1
     Route: 067
     Dates: start: 20111026, end: 20111026

REACTIONS (2)
  - UTERINE RUPTURE [None]
  - MATERNAL EXPOSURE DURING PREGNANCY [None]
